FAERS Safety Report 25537713 (Version 2)
Quarter: 2025Q3

REPORT INFORMATION
  Report Type: Spontaneous
  Country: JP (occurrence: JP)
  Receive Date: 20250710
  Receipt Date: 20250719
  Transmission Date: 20251020
  Serious: Yes (Other)
  Sender: TAKEDA
  Company Number: JP-TAKEDA-2025TUS061985

PATIENT
  Age: 49 Year
  Sex: Male

DRUGS (6)
  1. LIALDA [Suspect]
     Active Substance: MESALAMINE
     Indication: Colitis ulcerative
     Dosage: UNK, UNK,QD
  2. LIALDA [Suspect]
     Active Substance: MESALAMINE
     Dosage: 1200 MILLIGRAM, Q12H
     Dates: start: 20241029, end: 20250701
  3. LANSOPRAZOLE [Concomitant]
     Active Substance: LANSOPRAZOLE
     Dosage: 30 MILLIGRAM, Q12H
  4. ALLOID G [Concomitant]
     Active Substance: SODIUM ALGINATE
  5. VONOPRAZAN FUMARATE [Concomitant]
     Active Substance: VONOPRAZAN FUMARATE
     Dosage: 20 MILLIGRAM, QD
  6. REBAMIPIDE [Concomitant]
     Active Substance: REBAMIPIDE

REACTIONS (4)
  - Duodenal ulcer [Recovered/Resolved]
  - Duodenal stenosis [Recovered/Resolved]
  - Product residue present [Recovered/Resolved]
  - Gastric dilatation [Recovered/Resolved]

NARRATIVE: CASE EVENT DATE: 20250601
